FAERS Safety Report 12937150 (Version 2)
Quarter: 2016Q4

REPORT INFORMATION
  Report Type: Spontaneous
  Country: US (occurrence: US)
  Receive Date: 20161114
  Receipt Date: 20161117
  Transmission Date: 20170207
  Serious: No
  Sender: FDA-Public Use
  Company Number: US-PFIZER INC-2016392511

PATIENT
  Age: 60 Year
  Sex: Female

DRUGS (19)
  1. LYRICA [Suspect]
     Active Substance: PREGABALIN
     Dosage: 100 MG, 2X/DAY
     Route: 048
  2. CYCLOBENZAPRINE HYDROCHLORIDE. [Concomitant]
     Active Substance: CYCLOBENZAPRINE HYDROCHLORIDE
     Dosage: 10 MG, 3X/DAY
     Route: 048
     Dates: start: 20141024
  3. DULOXETINE HCL [Concomitant]
     Active Substance: DULOXETINE HYDROCHLORIDE
     Indication: DEPRESSION
     Dosage: 60 MG, DAILY
     Route: 048
     Dates: start: 20160122
  4. NORCO [Concomitant]
     Active Substance: ACETAMINOPHEN\HYDROCODONE BITARTRATE
     Dosage: UNK UNK, AS NEEDED, (HYDROCODONE BITARTRATE 7.5 MG, PARACETAMOL 325 MG)
     Dates: start: 20160527, end: 20160708
  5. DULOXETINE HCL [Concomitant]
     Active Substance: DULOXETINE HYDROCHLORIDE
     Dosage: 40 MG, DAILY, (TAKE 2 CAPSULES (40 MG) BY MOUTH DAILY)
     Route: 048
     Dates: start: 20150616, end: 20150731
  6. LEVOTHYROXINE SODIUM. [Concomitant]
     Active Substance: LEVOTHYROXINE SODIUM
     Dosage: 175 UG, 1X/DAY
     Route: 048
     Dates: start: 20141025
  7. LYRICA [Suspect]
     Active Substance: PREGABALIN
     Dosage: 75 MG, 2X/DAY
     Route: 048
     Dates: start: 20160122, end: 20160708
  8. INVOKANA [Concomitant]
     Active Substance: CANAGLIFLOZIN
     Dosage: 300 MG, 1X/DAY
     Route: 048
     Dates: start: 20140806
  9. FLUVIRINE [Concomitant]
     Indication: IMMUNISATION
     Dosage: 0.5 ML, SINGLE, (0.5 ML INTRAMUSCULAR ONE TIME)
     Route: 030
     Dates: start: 20150918
  10. INVOKANA [Concomitant]
     Active Substance: CANAGLIFLOZIN
     Dosage: 100 MG, 1X/DAY
     Route: 048
     Dates: start: 20140712, end: 20140805
  11. DULOXETINE HCL [Concomitant]
     Active Substance: DULOXETINE HYDROCHLORIDE
     Dosage: 30 MG, 2X/DAY
     Route: 048
     Dates: start: 20150626, end: 20160122
  12. NORCO [Concomitant]
     Active Substance: ACETAMINOPHEN\HYDROCODONE BITARTRATE
     Indication: PAIN
     Dosage: UNK UNK, AS NEEDED, (HYDROCODONE BITARTRATE 7.5 MG, PARACETAMOL 325 MG), 1 TAB EVERY 8 HRS PRN PAIN
     Route: 048
  13. DULOXETINE HCL [Concomitant]
     Active Substance: DULOXETINE HYDROCHLORIDE
     Dosage: 40 MG, DAILY, (TAKE 2 CAPSULES (40 MG) BY MOUTH DAILY)
     Route: 048
     Dates: start: 20150731, end: 20160122
  14. LOSARTAN POTASSIUM/HCTZ [Concomitant]
     Active Substance: HYDROCHLOROTHIAZIDE\LOSARTAN POTASSIUM
     Dosage: UNK UNK, 1X/DAY, (HYDROCHLOROTHIAZIDE 25 MG, LOSARTAN POTASSIUM 100 MG), ONCE A DAY)
     Route: 048
     Dates: start: 20150303
  15. CLOTRIMAZOLE AND BETAMETHASONE [Concomitant]
     Active Substance: BETAMETHASONE\CLOTRIMAZOLE
     Dosage: UNK UNK, 2X/DAY, (CLOTRIMAZOLE 1%, BETAMETHASONE 0.05%), 2 TIMES A DAY APPLY TO AFFECTED AREA)
     Dates: start: 20141216
  16. CYANOCOBALAMIN. [Concomitant]
     Active Substance: CYANOCOBALAMIN
     Dosage: 1 ML, UNK, (ADMINISTER 1 ML ,1,000 MCG INTRAMUSCULARLY ONE TIME)
     Route: 030
     Dates: start: 20151016
  17. FLONASE [Concomitant]
     Active Substance: FLUTICASONE PROPIONATE
     Dosage: UNK UNK, 1X/DAY, (50 MCG/INH NASAL SPRAY)
     Route: 045
     Dates: start: 20140719
  18. HYDROCHLOROTHIAZIDE W/LOSARTAN [Concomitant]
     Active Substance: HYDROCHLOROTHIAZIDE\LOSARTAN
     Dosage: UNK, 1X/DAY, (HYDROCHLOROTHIAZIDE 25 MG-LOSARTAN 100 MG)
     Route: 048
     Dates: start: 20141025
  19. NIFEDIPIN [Concomitant]
     Active Substance: NIFEDIPINE
     Dosage: 30 MG, 1X/DAY
     Route: 048
     Dates: start: 20140523

REACTIONS (1)
  - Pain [Not Recovered/Not Resolved]
